FAERS Safety Report 26195842 (Version 1)
Quarter: 2025Q4

REPORT INFORMATION
  Report Type: Spontaneous
  Country: US (occurrence: US)
  Receive Date: 20251224
  Receipt Date: 20251224
  Transmission Date: 20260118
  Serious: No
  Sender: SANOFI AVENTIS
  Company Number: US-SA-2025SA382324

PATIENT
  Sex: Female
  Weight: 46.36 kg

DRUGS (20)
  1. DUPIXENT [Suspect]
     Active Substance: DUPILUMAB
     Indication: Chronic obstructive pulmonary disease
     Dosage: 300 MG, QOW
     Route: 058
  2. OXYGEN [Concomitant]
     Active Substance: OXYGEN
  3. LORATADINE [Concomitant]
     Active Substance: LORATADINE
  4. MUCINEX [Concomitant]
     Active Substance: GUAIFENESIN
  5. ALBUTEROL SULFATE [Concomitant]
     Active Substance: ALBUTEROL SULFATE
  6. ZINC [Concomitant]
     Active Substance: ZINC
  7. VITAMIN D3 [Concomitant]
     Active Substance: CHOLECALCIFEROL
  8. ROFLUMILAST [Concomitant]
     Active Substance: ROFLUMILAST
  9. PREDNISONE [Concomitant]
     Active Substance: PREDNISONE
  10. ATORVASTATIN CALCIUM [Concomitant]
     Active Substance: ATORVASTATIN CALCIUM
  11. EPINEPHRINE [Concomitant]
     Active Substance: EPINEPHRINE
  12. ALENDRONATE SODIUM [Concomitant]
     Active Substance: ALENDRONATE SODIUM
  13. SPIRIVA RESPIMAT [Concomitant]
     Active Substance: TIOTROPIUM BROMIDE
  14. LISINOPRIL [Concomitant]
     Active Substance: LISINOPRIL
  15. DILTIAZEM [Concomitant]
     Active Substance: DILTIAZEM
  16. WIXELA INHUB [Concomitant]
     Active Substance: FLUTICASONE PROPIONATE\SALMETEROL XINAFOATE
  17. JARDIANCE [Concomitant]
     Active Substance: EMPAGLIFLOZIN
  18. FUROSEMIDE [Concomitant]
     Active Substance: FUROSEMIDE
  19. LEVOTHYROXINE SODIUM [Concomitant]
     Active Substance: LEVOTHYROXINE SODIUM
  20. SERTRALINE HYDROCHLORIDE [Concomitant]
     Active Substance: SERTRALINE HYDROCHLORIDE

REACTIONS (2)
  - Hypoacusis [Unknown]
  - Sinusitis [Unknown]
